FAERS Safety Report 6254372-6 (Version None)
Quarter: 2009Q3

REPORT INFORMATION
  Report Type: 
  Country: None (occurrence: None)
  Receive Date: 20090702
  Receipt Date: 20090625
  Transmission Date: 20100115
  Serious: Yes (Death, Hospitalization)
  Sender: FDA-Public Use
  Company Number: GB-ROCHE-604605

PATIENT
  Sex: Male
  Weight: 80.6 kg

DRUGS (6)
  1. CAPECITABINE [Suspect]
     Indication: COLON CANCER
     Dosage: RECEIVED 8 CYCLE
     Route: 048
     Dates: start: 20070910
  2. BEVACIZUMAB [Suspect]
     Indication: COLON CANCER
     Dosage: FORM REPORTED AS: INFUSION, STARTING DOSE 622.5, RECEIVED 16 CYCLE
     Route: 042
     Dates: start: 20070910
  3. CODEINE [Suspect]
     Indication: PAIN
     Route: 065
     Dates: start: 20081208
  4. LOPERAMIDE HYDROCHLORIDE [Suspect]
     Indication: DIARRHOEA
     Route: 065
     Dates: start: 20081208
  5. FLUOROURACIL [Suspect]
     Route: 065
  6. OXALIPLATIN [Suspect]
     Route: 065

REACTIONS (3)
  - ABDOMINAL PAIN [None]
  - DIARRHOEA [None]
  - VOMITING [None]
